FAERS Safety Report 22136458 (Version 3)
Quarter: 2023Q2

REPORT INFORMATION
  Report Type: Report from Study
  Country: US (occurrence: US)
  Receive Date: 20230324
  Receipt Date: 20230517
  Transmission Date: 20230722
  Serious: Yes (Other)
  Sender: FDA-Public Use
  Company Number: US-BAYER-2023A035083

PATIENT
  Age: 75 Year
  Sex: Male

DRUGS (11)
  1. STIVARGA [Suspect]
     Active Substance: REGORAFENIB
     Indication: Gastrointestinal stromal tumour
     Dosage: 160 MG, QD, ON DAYS 1 THROUGH 21 OF 28 DAY CYCLE
     Route: 048
     Dates: start: 20230309
  2. SUTENT [Concomitant]
     Active Substance: SUNITINIB MALATE
     Indication: Gastrointestinal stromal tumour
     Dosage: 37.5 MG, QD
     Route: 048
     Dates: start: 20211201
  3. IMATINIB MESYLATE [Concomitant]
     Active Substance: IMATINIB MESYLATE
     Indication: Gastrointestinal stromal tumour
     Dosage: 400 MG, QD
     Dates: start: 20210914
  4. PRAVASTATIN [Concomitant]
     Active Substance: PRAVASTATIN
     Dosage: UNK
  5. TAMSULOSIN [Concomitant]
     Active Substance: TAMSULOSIN
  6. DIPHENHYDRAMINE [Concomitant]
     Active Substance: DIPHENHYDRAMINE
  7. FOLIC ACID [Concomitant]
     Active Substance: FOLIC ACID
  8. BIFIDOBACTERIUM ANIMALIS LACTIS [Concomitant]
     Active Substance: BIFIDOBACTERIUM ANIMALIS LACTIS
     Dosage: UNK
  9. AMLODIPINE BESYLATE [Concomitant]
     Active Substance: AMLODIPINE BESYLATE
     Dosage: UNK
  10. IRON [Concomitant]
     Active Substance: IRON
     Dosage: UNK
  11. DEVICE\GLUCOSE OXIDASE\LACTOFERRIN\LACTOPEROXIDASE BOVINE\LYSOZYME HYD [Concomitant]
     Active Substance: DEVICE\GLUCOSE OXIDASE\LACTOFERRIN\LACTOPEROXIDASE BOVINE\LYSOZYME HYDROCHLORIDE
     Dosage: UNK

REACTIONS (18)
  - Pollakiuria [Unknown]
  - Neuropathy peripheral [Not Recovered/Not Resolved]
  - Abdominal pain upper [Unknown]
  - Weight decreased [Unknown]
  - Oral pain [Unknown]
  - Fatigue [Not Recovered/Not Resolved]
  - Diarrhoea [Not Recovered/Not Resolved]
  - Faeces hard [None]
  - Pain in extremity [Not Recovered/Not Resolved]
  - Palmar-plantar erythrodysaesthesia syndrome [Unknown]
  - Limb discomfort [None]
  - Gait disturbance [None]
  - Erythema [Unknown]
  - Blister [Unknown]
  - Hyperkeratosis [Unknown]
  - Pain [Unknown]
  - Faeces hard [Unknown]
  - Fatigue [Unknown]

NARRATIVE: CASE EVENT DATE: 20230321
